FAERS Safety Report 8056225-X (Version None)
Quarter: 2012Q1

REPORT INFORMATION
  Report Type: 
  Country: None (occurrence: None)
  Receive Date: 20120119
  Receipt Date: 20120116
  Transmission Date: 20120608
  Serious: Yes (Death)
  Sender: FDA-Public Use
  Company Number: PHHY2012GB003555

PATIENT
  Age: 67 Year
  Sex: Female
  Weight: 65 kg

DRUGS (7)
  1. AUGMENTIN '125' [Concomitant]
     Dosage: 1.2 G, UNK
  2. ONDANSETRON [Concomitant]
  3. VECURONIUM BROMIDE [Concomitant]
  4. ROCURONIUM BROMIDE [Concomitant]
  5. VANCOMYCIN [Suspect]
     Indication: PROPHYLAXIS
     Dosage: 1 G DILUTED IN 500 ML NORMAL SALINE TO RUN OVER 2 HOURS
  6. DEXAMETHASONE TAB [Concomitant]
  7. SEVOFLURANE [Concomitant]

REACTIONS (4)
  - CARDIAC ARREST [None]
  - ANAPHYLACTIC REACTION [None]
  - ERYTHEMA [None]
  - BLOOD PRESSURE DECREASED [None]
